FAERS Safety Report 9893277 (Version 2)
Quarter: 2014Q1

REPORT INFORMATION
  Report Type: Spontaneous
  Country: SE (occurrence: SE)
  Receive Date: 20140213
  Receipt Date: 20140226
  Transmission Date: 20141002
  Serious: Yes (Other)
  Sender: FDA-Public Use
  Company Number: SE-RANBAXY-2014R1-77810

PATIENT
  Age: 44 Year
  Sex: Female

DRUGS (1)
  1. SERTRALIN RANBAXY 100 MG FILM-COATED TABLET [Suspect]
     Indication: PRODUCT USED FOR UNKNOWN INDICATION
     Dosage: UNK
     Route: 065

REACTIONS (1)
  - Therapeutic response unexpected with drug substitution [Recovered/Resolved]
